FAERS Safety Report 8283471-2 (Version None)
Quarter: 2012Q2

REPORT INFORMATION
  Report Type: 
  Country: None (occurrence: None)
  Receive Date: 20120413
  Receipt Date: 20120323
  Transmission Date: 20120825
  Serious: Yes (Other)
  Sender: FDA-Public Use
  Company Number: CHNY2012RU000517

PATIENT
  Age: 37 Year
  Sex: Male

DRUGS (1)
  1. OTRIVIN [Suspect]
     Indication: RHINORRHOEA
     Dosage: UNK
     Route: 045

REACTIONS (3)
  - DRUG DEPENDENCE [None]
  - REBOUND EFFECT [None]
  - NASAL CONGESTION [None]
